FAERS Safety Report 11554836 (Version 1)
Quarter: 2015Q3

REPORT INFORMATION
  Report Type: Spontaneous
  Country: CA (occurrence: CA)
  Receive Date: 20150925
  Receipt Date: 20150925
  Transmission Date: 20151125
  Serious: Yes (Other)
  Sender: FDA-Public Use
  Company Number: CA-TEVA-596831ACC

PATIENT
  Age: 70 Year
  Sex: Female
  Weight: 61.74 kg

DRUGS (4)
  1. SYNTHROID [Concomitant]
     Active Substance: LEVOTHYROXINE SODIUM
  2. AMOXICILLIN/CLAVULANATE [Suspect]
     Active Substance: AMOXICILLIN\CLAVULANATE POTASSIUM
     Indication: SINUSITIS
     Dosage: 250 MILLIGRAM DAILY;
     Route: 065
  3. ESTRACE [Concomitant]
     Active Substance: ESTRADIOL
  4. XALATAN [Concomitant]
     Active Substance: LATANOPROST
     Route: 047

REACTIONS (3)
  - Diarrhoea [Recovering/Resolving]
  - Clostridium difficile infection [Recovering/Resolving]
  - Asthenia [Recovering/Resolving]
